FAERS Safety Report 11072839 (Version 1)
Quarter: 2015Q2

REPORT INFORMATION
  Report Type: Spontaneous
  Country: GB (occurrence: GB)
  Receive Date: 20150428
  Receipt Date: 20150428
  Transmission Date: 20150821
  Serious: Yes (Death, Other)
  Sender: FDA-Public Use
  Company Number: GB-BAYER-2015-135552

PATIENT
  Age: 54 Year
  Sex: Male

DRUGS (5)
  1. CIPROFLOXACIN BETAIN [Suspect]
     Active Substance: CIPROFLOXACIN
  2. CYCLOPHOSPHAMIDE. [Suspect]
     Active Substance: CYCLOPHOSPHAMIDE
     Indication: IMMUNOSUPPRESSION
  3. CLARITHROMYCIN. [Concomitant]
     Active Substance: CLARITHROMYCIN
  4. OSELTAMIVIR [Concomitant]
     Active Substance: OSELTAMIVIR
  5. PREDNISOLONE. [Suspect]
     Active Substance: PREDNISOLONE
     Indication: IMMUNOSUPPRESSION

REACTIONS (5)
  - Drug ineffective [None]
  - Death [Fatal]
  - Bronchopulmonary aspergillosis [None]
  - Neutropenic sepsis [None]
  - H1N1 influenza [None]
